FAERS Safety Report 8763243 (Version 1)
Quarter: 2012Q4

REPORT INFORMATION
  Report Type: 
  Country: US (occurrence: US)
  Receive Date: 20120831
  Receipt Date: 20120831
  Transmission Date: 20130627
  Serious: No
  Sender: FDA-Public Use
  Company Number: US-MYLANLABS-2012S1012493

PATIENT
  Age: 14 Year
  Sex: Female

DRUGS (2)
  1. DOXYCYCLINE HYCLATE DELAYED-RELEASE TABLETS USP [Suspect]
     Indication: RASH
     Route: 048
     Dates: start: 20120602
  2. DOXYCYCLINE HYCLATE DELAYED-RELEASE TABLETS USP [Suspect]
     Indication: ACNE
     Route: 048
     Dates: start: 20120602

REACTIONS (1)
  - Rash [Not Recovered/Not Resolved]
